FAERS Safety Report 14978072 (Version 4)
Quarter: 2018Q4

REPORT INFORMATION
  Report Type: Spontaneous
  Country: US (occurrence: US)
  Receive Date: 20180606
  Receipt Date: 20181206
  Transmission Date: 20190204
  Serious: No
  Sender: FDA-Public Use
  Company Number: US-PFIZER INC-2018230791

PATIENT
  Age: 48 Year
  Sex: Female

DRUGS (15)
  1. HYDROCODONE [Concomitant]
     Active Substance: HYDROCODONE
  2. OXYCODONE [Concomitant]
     Active Substance: OXYCODONE
  3. EMLA [LIDOCAINE HYDROCHLORIDE;PRILOCAINE HYDROCHLORIDE] [Concomitant]
  4. LASIX [Concomitant]
     Active Substance: FUROSEMIDE
  5. VALIUM [Concomitant]
     Active Substance: DIAZEPAM
  6. TAXOTERE [Suspect]
     Active Substance: DOCETAXEL
     Indication: BREAST CANCER FEMALE
     Dosage: UNK, CYCLIC (EVERY THREE WEEKS)
     Dates: start: 201404, end: 201409
  7. DEXAMETHASONE. [Concomitant]
     Active Substance: DEXAMETHASONE
     Dosage: UNK
  8. FUROSEMIDE. [Concomitant]
     Active Substance: FUROSEMIDE
  9. ONDANSETRON [Concomitant]
     Active Substance: ONDANSETRON
  10. DOCETAXEL. [Suspect]
     Active Substance: DOCETAXEL
     Indication: BREAST CANCER FEMALE
     Dosage: UNK, CYCLIC (EVERY THREE WEEKS)
     Dates: start: 201404, end: 201409
  11. PHENERGAN [PROMETHAZINE] [Concomitant]
  12. GABAPENTIN. [Concomitant]
     Active Substance: GABAPENTIN
  13. TAMOXIFEN [Concomitant]
     Active Substance: TAMOXIFEN
  14. LEUPROLIDE [LEUPRORELIN] [Concomitant]
  15. ZITHROMAX [Concomitant]
     Active Substance: AZITHROMYCIN DIHYDRATE

REACTIONS (6)
  - Weight decreased [Unknown]
  - Madarosis [Not Recovered/Not Resolved]
  - Hair colour changes [Not Recovered/Not Resolved]
  - Hair disorder [Not Recovered/Not Resolved]
  - Alopecia [Not Recovered/Not Resolved]
  - Hair texture abnormal [Not Recovered/Not Resolved]

NARRATIVE: CASE EVENT DATE: 201404
